FAERS Safety Report 4604903-4 (Version None)
Quarter: 2005Q1

REPORT INFORMATION
  Report Type: 
  Country: None (occurrence: None)
  Receive Date: 20050310
  Receipt Date: 20050310
  Transmission Date: 20050727
  Serious: Yes (Hospitalization)
  Sender: FDA-Public Use
  Company Number: None

PATIENT
  Age: 42 Year
  Sex: Male
  Weight: 65.318 kg

DRUGS (2)
  1. PACLITAXEL [Suspect]
     Indication: CHEMOTHERAPY
     Dosage: 20.00MG/M^2   DAILY X 5   INTRAVENOU
     Route: 042
     Dates: start: 20050124, end: 20050211
  2. CISPLATIN [Suspect]
     Indication: CHEMOTHERAPY
     Dosage: 15.00MG/M^2   DAILY X 5   INTRAVENOU
     Route: 042
     Dates: start: 20050124, end: 20050211

REACTIONS (6)
  - DEHYDRATION [None]
  - DYSPHAGIA [None]
  - NAUSEA [None]
  - ORAL INTAKE REDUCED [None]
  - PAIN [None]
  - PYREXIA [None]
